FAERS Safety Report 8805475 (Version 3)
Quarter: 2014Q3

REPORT INFORMATION
  Report Type: Report from Study
  Country: US (occurrence: US)
  Receive Date: 20120924
  Receipt Date: 20140901
  Transmission Date: 20150326
  Serious: Yes (Death, Hospitalization, Other)
  Sender: FDA-Public Use
  Company Number: US-ROCHE-1135667

PATIENT
  Age: 49 Year
  Sex: Female

DRUGS (9)
  1. OXALIPLATIN. [Suspect]
     Active Substance: OXALIPLATIN
     Indication: PRODUCT USED FOR UNKNOWN INDICATION
     Route: 065
     Dates: start: 20091218
  2. XELODA [Suspect]
     Active Substance: CAPECITABINE
     Indication: PANCREATIC CARCINOMA
     Route: 048
     Dates: start: 20091218
  3. XELODA [Suspect]
     Active Substance: CAPECITABINE
     Indication: METASTASES TO LIVER
     Route: 048
     Dates: start: 20100127, end: 20100323
  4. XELODA [Suspect]
     Active Substance: CAPECITABINE
     Dosage: CYCLE: 14 DAYS, 7 DAYS ON, 7 DAYS OFF, EACH DOSE IS 2G (4 TABLETS OF 500MG). TWO DOSES DAILY.
     Route: 048
     Dates: start: 20101013
  5. AVASTIN [Suspect]
     Active Substance: BEVACIZUMAB
     Indication: PRODUCT USED FOR UNKNOWN INDICATION
     Route: 042
     Dates: start: 20091217, end: 20100511
  6. LEUCOVORIN [Concomitant]
     Active Substance: LEUCOVORIN
     Route: 065
  7. 5-FU [Concomitant]
     Active Substance: FLUOROURACIL
     Route: 065
  8. OXALIPLATIN. [Suspect]
     Active Substance: OXALIPLATIN
     Route: 065
     Dates: start: 20100127, end: 20100323
  9. XELODA [Suspect]
     Active Substance: CAPECITABINE
     Route: 048
     Dates: start: 20100803, end: 20100909

REACTIONS (4)
  - Death [Fatal]
  - Bone marrow failure [Unknown]
  - Drug intolerance [Unknown]
  - Large intestinal obstruction [Unknown]

NARRATIVE: CASE EVENT DATE: 20100122
